FAERS Safety Report 9292569 (Version 2)
Quarter: 2013Q2

REPORT INFORMATION
  Report Type: Report from Study
  Country: US (occurrence: US)
  Receive Date: 20130516
  Receipt Date: 20130516
  Transmission Date: 20140414
  Serious: Yes (Hospitalization)
  Sender: FDA-Public Use
  Company Number: US-BRISTOL-MYERS SQUIBB COMPANY-18871194

PATIENT
  Age: 25 Year
  Sex: Female

DRUGS (3)
  1. ARIPIPRAZOLE IM DEPOT [Suspect]
     Indication: SCHIZOPHRENIA
     Dosage: LAST DOSE-11MAR13?TOTAL DOSES-7?ONE INJ OF 400MG ,6 INJ OF 300MG?24AUG2012-2012
     Route: 030
     Dates: start: 20120921, end: 20130311
  2. CITALOPRAM [Concomitant]
     Indication: DEPRESSION
     Route: 048
     Dates: start: 20111103
  3. CLONAZEPAM [Concomitant]
     Indication: ANXIETY
     Route: 048
     Dates: start: 20130311, end: 20130408

REACTIONS (1)
  - Schizophrenia, paranoid type [Recovered/Resolved]
